FAERS Safety Report 23749756 (Version 2)
Quarter: 2024Q2

REPORT INFORMATION
  Report Type: Spontaneous
  Country: US (occurrence: US)
  Receive Date: 20240416
  Receipt Date: 20240520
  Transmission Date: 20240716
  Serious: No
  Sender: FDA-Public Use
  Company Number: US-JNJFOC-20240425497

PATIENT
  Age: 42 Year
  Sex: Male
  Weight: 111.23 kg

DRUGS (3)
  1. TREMFYA [Suspect]
     Active Substance: GUSELKUMAB
     Indication: Psoriatic arthropathy
     Route: 058
     Dates: start: 20230117
  2. TREMFYA [Suspect]
     Active Substance: GUSELKUMAB
  3. VENLAFAXINE [Concomitant]
     Active Substance: VENLAFAXINE HYDROCHLORIDE
     Indication: Depression

REACTIONS (5)
  - Bedridden [Unknown]
  - Pain [Unknown]
  - Product quality issue [Unknown]
  - Underdose [Unknown]
  - Product packaging issue [Unknown]
